FAERS Safety Report 11921241 (Version 2)
Quarter: 2016Q1

REPORT INFORMATION
  Report Type: Report from Study
  Country: KR (occurrence: KR)
  Receive Date: 20160115
  Receipt Date: 20160309
  Transmission Date: 20160526
  Serious: Yes (Death)
  Sender: FDA-Public Use
  Company Number: KR-CELGENE-KOR-2016010889

PATIENT
  Age: 73 Year
  Sex: Female
  Weight: 64 kg

DRUGS (25)
  1. DEXAMETHASONE. [Suspect]
     Active Substance: DEXAMETHASONE
     Indication: PLASMA CELL MYELOMA
     Dosage: 100 MILLIGRAM
     Route: 065
     Dates: start: 20141030, end: 20141120
  2. DEXAMETHASONE. [Suspect]
     Active Substance: DEXAMETHASONE
     Dosage: 300 MILLIGRAM
     Route: 048
     Dates: start: 20150124, end: 20150125
  3. TARGIN PR [Concomitant]
     Indication: PAIN
     Dosage: 10/5 MG
     Route: 048
     Dates: start: 20141216, end: 20150204
  4. LAFUTIDINE [Concomitant]
     Active Substance: LAFUTIDINE
     Indication: PROPHYLAXIS
     Route: 048
     Dates: start: 20141230, end: 20150205
  5. TAMIPOOL [Concomitant]
     Active Substance: VITAMINS
     Indication: DECREASED APPETITE
     Route: 041
     Dates: start: 20150129, end: 20150204
  6. MATRIFEN [Concomitant]
     Active Substance: FENTANYL
     Indication: PAIN
     Dosage: 25 MIGROG/HR
     Route: 062
     Dates: start: 20150205, end: 20150205
  7. REVLIMID [Suspect]
     Active Substance: LENALIDOMIDE
     Route: 048
     Dates: start: 20141213, end: 20150126
  8. MEGESTROL ACETATE. [Concomitant]
     Active Substance: MEGESTROL ACETATE
     Indication: DECREASED APPETITE
     Dosage: 1 DOSAGE FORMS
     Route: 048
     Dates: start: 20141216, end: 20150204
  9. RIVAROXABAN [Concomitant]
     Active Substance: RIVAROXABAN
     Indication: PULMONARY EMBOLISM
     Route: 048
     Dates: start: 20141216, end: 20150125
  10. REVLIMID [Suspect]
     Active Substance: LENALIDOMIDE
     Indication: PLASMA CELL MYELOMA
     Route: 048
     Dates: start: 20141216
  11. CAL-D [Concomitant]
     Indication: MINERAL SUPPLEMENTATION
     Dosage: 20 MILLIGRAM
     Route: 048
     Dates: start: 20141216, end: 20150206
  12. AMITRIPTYLINE [Concomitant]
     Active Substance: AMITRIPTYLINE
     Indication: HYPOAESTHESIA
     Route: 048
     Dates: start: 20141216, end: 20150130
  13. RANITIDINE [Concomitant]
     Active Substance: RANITIDINE\RANITIDINE HYDROCHLORIDE
     Indication: PROPHYLAXIS
     Route: 048
     Dates: start: 20141216, end: 20141219
  14. DEXAMETHASONE. [Suspect]
     Active Substance: DEXAMETHASONE
     Dosage: 2 TABLET
     Route: 048
     Dates: start: 20141230, end: 20150112
  15. DEXAMETHASONE. [Suspect]
     Active Substance: DEXAMETHASONE
     Dosage: 5 MILLILITER
     Route: 048
     Dates: start: 20150113, end: 20150116
  16. SEPTRIN [Concomitant]
     Active Substance: SULFAMETHOXAZOLE\TRIMETHOPRIM
     Indication: PROPHYLAXIS
     Route: 048
     Dates: start: 20141230, end: 20150130
  17. MORPHINE HCL [Concomitant]
     Active Substance: MORPHINE HYDROCHLORIDE
     Indication: PAIN
     Route: 041
     Dates: start: 20150126, end: 20150206
  18. DEXAMETHASONE. [Suspect]
     Active Substance: DEXAMETHASONE
     Route: 048
     Dates: start: 20150130, end: 20150202
  19. DEXAMETHASONE. [Suspect]
     Active Substance: DEXAMETHASONE
     Indication: DISEASE PROGRESSION
     Dosage: 10 MILLIGRAM
     Route: 048
     Dates: start: 20141216, end: 20141219
  20. DEXAMETHASONE. [Suspect]
     Active Substance: DEXAMETHASONE
     Route: 048
     Dates: start: 20150126, end: 20150129
  21. ASPIRIN. [Concomitant]
     Active Substance: ASPIRIN
     Indication: THROMBOSIS PROPHYLAXIS
     Dosage: .5 TABLET
     Route: 048
     Dates: start: 20141216, end: 20150125
  22. MATRIFEN [Concomitant]
     Active Substance: FENTANYL
     Dosage: 50 MIGROG/HR
     Route: 062
     Dates: start: 20150205, end: 20150205
  23. DEXAMETHASONE. [Suspect]
     Active Substance: DEXAMETHASONE
     Dosage: 20 MILLIGRAM
     Route: 048
     Dates: start: 20150117, end: 20150123
  24. DEXAMETHASONE. [Suspect]
     Active Substance: DEXAMETHASONE
     Route: 048
     Dates: start: 20150203, end: 20150206
  25. WINUF PERI [Concomitant]
     Indication: DECREASED APPETITE
     Route: 041
     Dates: start: 20150129, end: 20150204

REACTIONS (1)
  - Plasma cell myeloma [Fatal]

NARRATIVE: CASE EVENT DATE: 20150116
